FAERS Safety Report 8816893 (Version 1)
Quarter: 2012Q4

REPORT INFORMATION
  Report Type: Spontaneous
  Country: US (occurrence: None)
  Receive Date: 20121002
  Receipt Date: 20121002
  Transmission Date: 20130627
  Serious: Yes (Other)
  Sender: FDA-Public Use
  Company Number: None

PATIENT
  Age: 23 Year
  Sex: Male
  Weight: 83.92 kg

DRUGS (1)
  1. SERTRALINE [Suspect]

REACTIONS (2)
  - Withdrawal syndrome [None]
  - Autism [None]
